FAERS Safety Report 4586767-0 (Version None)
Quarter: 2005Q1

REPORT INFORMATION
  Report Type: 
  Country: None (occurrence: None)
  Receive Date: 20050214
  Receipt Date: 20050131
  Transmission Date: 20050727
  Serious: Yes (Hospitalization, Other)
  Sender: FDA-Public Use
  Company Number: 2004078595

PATIENT
  Age: 65 Year
  Sex: Male
  Weight: 285 kg

DRUGS (8)
  1. LIPITOR [Suspect]
     Indication: BLOOD CHOLESTEROL
     Dosage: (100 MG, 1 IN 1 D), ORAL
     Route: 048
  2. NAPROXEN [Concomitant]
  3. SODIUM CHLORIDE 0.9% [Concomitant]
  4. PROPACET 100 [Concomitant]
  5. AMITRIPTYLINE HCL [Concomitant]
  6. ROFECOXIB [Concomitant]
  7. HYZAAR [Concomitant]
  8. ANTIHYPERTENSIVES (ANTIHYPERTENSIVES) [Concomitant]

REACTIONS (10)
  - CORONARY ARTERY OCCLUSION [None]
  - DIABETES MELLITUS NON-INSULIN-DEPENDENT [None]
  - DRUG EFFECT DECREASED [None]
  - ELECTROCARDIOGRAM ABNORMAL [None]
  - HEART RATE IRREGULAR [None]
  - HYPERLIPIDAEMIA [None]
  - HYPERTENSION [None]
  - INSOMNIA [None]
  - MYOCARDIAL INFARCTION [None]
  - PAIN [None]
